FAERS Safety Report 11419691 (Version 1)
Quarter: 2015Q3

REPORT INFORMATION
  Report Type: Spontaneous
  Country: US (occurrence: None)
  Receive Date: 20150825
  Receipt Date: 20150825
  Transmission Date: 20151125
  Serious: Yes (Other)
  Sender: FDA-Public Use
  Company Number: None

PATIENT
  Age: 90 Year
  Sex: Male
  Weight: 49.9 kg

DRUGS (2)
  1. OXIBUTYNIN [Concomitant]
  2. ATIVAN [Suspect]
     Active Substance: LORAZEPAM
     Indication: ANXIETY
     Route: 048
     Dates: start: 20150821, end: 20150821

REACTIONS (4)
  - Agitation [None]
  - Somnolence [None]
  - Psychotic disorder [None]
  - Panic reaction [None]

NARRATIVE: CASE EVENT DATE: 20150821
